FAERS Safety Report 24544350 (Version 9)
Quarter: 2025Q1

REPORT INFORMATION
  Report Type: Spontaneous
  Country: US (occurrence: US)
  Receive Date: 20241024
  Receipt Date: 20250306
  Transmission Date: 20250408
  Serious: Yes (Other)
  Sender: PFIZER
  Company Number: US-PFIZER INC-202400284825

PATIENT
  Age: 46 Year
  Sex: Female
  Weight: 71.67 kg

DRUGS (9)
  1. XELJANZ XR [Suspect]
     Active Substance: TOFACITINIB CITRATE
     Indication: Rheumatoid arthritis
     Dosage: 11 MG, DAILY
     Route: 048
     Dates: start: 2011
  2. XELJANZ XR [Suspect]
     Active Substance: TOFACITINIB CITRATE
     Indication: Arthritis
     Dates: start: 202407
  3. XELJANZ XR [Suspect]
     Active Substance: TOFACITINIB CITRATE
     Dosage: 11 MG, 1X/DAY
     Route: 048
  4. ARAVA [Concomitant]
     Active Substance: LEFLUNOMIDE
     Dates: start: 2021
  5. METHOTREXATE [Concomitant]
     Active Substance: METHOTREXATE
     Dates: start: 2021
  6. PREDNISOLONE [Concomitant]
     Active Substance: PREDNISOLONE
     Indication: Arthritis
     Dosage: 5 MG, DAILY
  7. PREDNISOLONE [Concomitant]
     Active Substance: PREDNISOLONE
     Indication: Inflammation
  8. RINVOQ [Concomitant]
     Active Substance: UPADACITINIB
  9. XELJANZ [Concomitant]
     Active Substance: TOFACITINIB CITRATE
     Dosage: 5 MG, 2X/DAY
     Dates: end: 202408

REACTIONS (8)
  - Knee arthroplasty [Unknown]
  - Disease recurrence [Unknown]
  - Gingivitis [Unknown]
  - Arthritis infective [Unknown]
  - Osteoporosis [Unknown]
  - Influenza [Unknown]
  - Aphonia [Unknown]
  - Condition aggravated [Unknown]

NARRATIVE: CASE EVENT DATE: 20140101
